FAERS Safety Report 7781113-3 (Version None)
Quarter: 2011Q3

REPORT INFORMATION
  Report Type: 
  Country: None (occurrence: None)
  Receive Date: 20110927
  Receipt Date: 20110922
  Transmission Date: 20111222
  Serious: Yes (Death)
  Sender: FDA-Public Use
  Company Number: PHHY2011JP81240

PATIENT
  Sex: Female

DRUGS (2)
  1. EXELON [Suspect]
     Dosage: 9 MG/24 HOURS
     Route: 062
  2. EXELON [Suspect]
     Dosage: 4.5 MG/24 HOURS
     Route: 062

REACTIONS (1)
  - NEOPLASM MALIGNANT [None]
